FAERS Safety Report 5964666-7 (Version None)
Quarter: 2008Q4

REPORT INFORMATION
  Report Type: 
  Country: None (occurrence: None)
  Receive Date: 20081125
  Receipt Date: 20081024
  Transmission Date: 20090506
  Serious: No
  Sender: FDA-Public Use
  Company Number: US-BAYER-200836958NA

PATIENT
  Age: 25 Year
  Sex: Female
  Weight: 100 kg

DRUGS (3)
  1. MIRENA [Suspect]
     Indication: CONTRACEPTION
     Route: 015
     Dates: start: 20080801
  2. PREDNISONE TAB [Concomitant]
  3. IMURAN [Concomitant]

REACTIONS (1)
  - VAGINAL HAEMORRHAGE [None]
